FAERS Safety Report 17008370 (Version 1)
Quarter: 2019Q4

REPORT INFORMATION
  Report Type: Spontaneous
  Country: ES (occurrence: ES)
  Receive Date: 20191108
  Receipt Date: 20191108
  Transmission Date: 20200122
  Serious: Yes (Other)
  Sender: FDA-Public Use
  Company Number: ES-SUN PHARMACEUTICAL INDUSTRIES LTD-2019RR-226998

PATIENT
  Age: 58 Year
  Sex: Female

DRUGS (10)
  1. OXALIPLATIN. [Suspect]
     Active Substance: OXALIPLATIN
     Indication: LUNG ADENOCARCINOMA
     Dosage: 100 MG/M2, EVERY 2 WEEKS
     Route: 042
     Dates: start: 201710, end: 201712
  2. PEMETREXED. [Suspect]
     Active Substance: PEMETREXED
     Indication: LUNG ADENOCARCINOMA
     Dosage: 4 CYCLES OF CISPLATIN PLUS PEMETRXED
     Route: 065
  3. CARBOPLATIN. [Suspect]
     Active Substance: CARBOPLATIN
     Indication: LUNG ADENOCARCINOMA
     Dosage: CARBOPLATIN PLUS PACLITAXEL (THREE CYCLES)
  4. NIVOLUMAB [Concomitant]
     Active Substance: NIVOLUMAB
     Indication: LUNG ADENOCARCINOMA
     Dosage: UNK
     Route: 065
     Dates: start: 201609, end: 201705
  5. LEUCOVORIN. [Suspect]
     Active Substance: LEUCOVORIN
     Indication: LUNG ADENOCARCINOMA
     Dosage: 400 MG/M2
     Route: 065
     Dates: start: 201710, end: 201712
  6. 5-FLUOROURACIL [Suspect]
     Active Substance: FLUOROURACIL
     Dosage: 1200 MG/M2/DAY
     Route: 042
     Dates: start: 201710, end: 201712
  7. 5-FLUOROURACIL [Suspect]
     Active Substance: FLUOROURACIL
     Indication: LUNG ADENOCARCINOMA
     Dosage: 400MG/M2
     Route: 042
     Dates: start: 201710, end: 201712
  8. NIVOLUMAB [Concomitant]
     Active Substance: NIVOLUMAB
     Dosage: UNK
     Route: 065
     Dates: start: 2017
  9. CISPLATIN. [Suspect]
     Active Substance: CISPLATIN
     Indication: LUNG ADENOCARCINOMA
     Dosage: 4 CYCLES OF CISPLATIN PLUS PEMETRXED
     Route: 065
  10. PACLITAXEL. [Suspect]
     Active Substance: PACLITAXEL
     Indication: LUNG ADENOCARCINOMA
     Dosage: CARBOPLATIN PLUS PACLITAXEL (THREE CYCLES)

REACTIONS (4)
  - Therapeutic product effect incomplete [Unknown]
  - Neutropenia [Unknown]
  - Thrombocytopenia [Unknown]
  - Disease progression [Recovering/Resolving]
